FAERS Safety Report 14024637 (Version 1)
Quarter: 2017Q3

REPORT INFORMATION
  Report Type: Spontaneous
  Country: US (occurrence: US)
  Receive Date: 20170929
  Receipt Date: 20170929
  Transmission Date: 20171128
  Serious: Yes (Hospitalization, Other)
  Sender: FDA-Public Use
  Company Number: US-BEH-2017083852

PATIENT
  Sex: Female
  Weight: 61.68 kg

DRUGS (19)
  1. KLOR-CON [Concomitant]
     Active Substance: POTASSIUM CHLORIDE
  2. NEURONTIN [Concomitant]
     Active Substance: GABAPENTIN
  3. HIZENTRA [Suspect]
     Active Substance: HUMAN IMMUNOGLOBULIN G
     Dosage: UNK
     Route: 058
  4. LIPITOR [Concomitant]
     Active Substance: ATORVASTATIN CALCIUM
  5. HIZENTRA [Suspect]
     Active Substance: HUMAN IMMUNOGLOBULIN G
     Indication: IMMUNODEFICIENCY COMMON VARIABLE
     Dosage: 10 G, QW
     Route: 058
     Dates: start: 20101227
  6. IRON [Concomitant]
     Active Substance: IRON
  7. PROTONIX [Concomitant]
     Active Substance: PANTOPRAZOLE SODIUM
  8. AMINO ACID [Concomitant]
     Active Substance: AMINO ACIDS
  9. MUCINEX [Concomitant]
     Active Substance: GUAIFENESIN
  10. MORPHINE [Concomitant]
     Active Substance: MORPHINE
  11. CYCLOBENZAPRINE. [Concomitant]
     Active Substance: CYCLOBENZAPRINE
  12. INDAPAMIDE. [Concomitant]
     Active Substance: INDAPAMIDE
  13. ALLOPURINOL. [Concomitant]
     Active Substance: ALLOPURINOL
  14. HIZENTRA [Suspect]
     Active Substance: HUMAN IMMUNOGLOBULIN G
     Dosage: UNK
     Route: 058
  15. BUPROPION. [Concomitant]
     Active Substance: BUPROPION
  16. SYNTHROID [Concomitant]
     Active Substance: LEVOTHYROXINE SODIUM
  17. CYMBALTA [Concomitant]
     Active Substance: DULOXETINE HYDROCHLORIDE
  18. ATENOLOL. [Concomitant]
     Active Substance: ATENOLOL
  19. SALMON OIL [Concomitant]
     Active Substance: FISH OIL

REACTIONS (3)
  - Fatigue [Unknown]
  - Skin cancer [Unknown]
  - Malaise [Unknown]
